FAERS Safety Report 10231454 (Version 1)
Quarter: 2014Q2

REPORT INFORMATION
  Report Type: Spontaneous
  Country: FI (occurrence: FI)
  Receive Date: 20140611
  Receipt Date: 20140611
  Transmission Date: 20141212
  Serious: Yes (Hospitalization)
  Sender: FDA-Public Use
  Company Number: FI-EISAI INC-E2090-03317-SPO-FI

PATIENT
  Age: 12 Year
  Sex: Male

DRUGS (5)
  1. ZONEGRAN [Suspect]
     Indication: EPILEPSY
     Dosage: 300 MG/DAY
     Route: 048
     Dates: start: 20120515
  2. TRILEPTAL [Concomitant]
     Indication: EPILEPSY
     Dosage: 1800 MG/DAY
     Route: 048
     Dates: start: 20110101
  3. ORFIRIL LONG [Concomitant]
     Indication: EPILEPSY
     Dosage: UNKNOWN
     Route: 048
     Dates: start: 20110412
  4. FRISIUM [Concomitant]
     Indication: EPILEPSY
     Dosage: 10 MG/DAY
     Route: 048
     Dates: start: 20130919
  5. RISPERIDONE [Concomitant]
     Indication: PRODUCT USED FOR UNKNOWN INDICATION
     Dosage: 1 MG/DAY

REACTIONS (3)
  - Abnormal behaviour [Not Recovered/Not Resolved]
  - Aggression [Not Recovered/Not Resolved]
  - Self injurious behaviour [Not Recovered/Not Resolved]
